FAERS Safety Report 9994821 (Version 2)
Quarter: 2014Q3

REPORT INFORMATION
  Report Type: Spontaneous
  Country: JP (occurrence: JP)
  Receive Date: 20140311
  Receipt Date: 20140923
  Transmission Date: 20150326
  Serious: Yes (Other)
  Sender: FDA-Public Use
  Company Number: PHHY2014JP027896

PATIENT
  Age: 28 Year
  Sex: Male

DRUGS (9)
  1. CICLOSPORIN [Suspect]
     Active Substance: CYCLOSPORINE
     Indication: HISTIOCYTOSIS HAEMATOPHAGIC
     Dosage: 120 MG, PER DAY
  2. PREDONINE [Suspect]
     Active Substance: PREDNISOLONE\PREDNISOLONE ACETATE\PREDNISOLONE SODIUM SUCCINATE
     Dosage: 90 MG
     Route: 048
  3. VORICONAZOLE. [Suspect]
     Active Substance: VORICONAZOLE
     Dosage: 400 MG, PER DAY (FOR ONLY 1 WEEK)
  4. MICAFUNGIN [Suspect]
     Active Substance: MICAFUNGIN
     Dosage: 50 MG,PER DAY
  5. ETOPOSIDE. [Suspect]
     Active Substance: ETOPOSIDE
     Indication: HISTIOCYTOSIS HAEMATOPHAGIC
     Dosage: 240 MG, BIW
  6. ITRACONAZOLE. [Suspect]
     Active Substance: ITRACONAZOLE
     Indication: ANTIFUNGAL PROPHYLAXIS
     Dosage: 200 MG, PER DAY
     Route: 048
  7. AMPHOTERICIN B, LIPOSOME [Suspect]
     Active Substance: AMPHOTERICIN B
     Dosage: 150 MG, PER DAY
  8. PREDONINE [Suspect]
     Active Substance: PREDNISOLONE\PREDNISOLONE ACETATE\PREDNISOLONE SODIUM SUCCINATE
     Dosage: 60 MG
     Route: 048
  9. DEXAMETHASONE. [Suspect]
     Active Substance: DEXAMETHASONE
     Indication: HISTIOCYTOSIS HAEMATOPHAGIC
     Dosage: 16.5 MG, PER DAY

REACTIONS (18)
  - Biopsy skin abnormal [Recovered/Resolved]
  - Fungal infection [Recovering/Resolving]
  - Skin ulcer [Recovered/Resolved]
  - Skin lesion [Recovered/Resolved]
  - Dyspnoea [Unknown]
  - Necrotising fasciitis [Recovering/Resolving]
  - Penicilliosis [Recovered/Resolved]
  - Drug ineffective [Unknown]
  - Rash pustular [Recovered/Resolved]
  - Skin disorder [Recovering/Resolving]
  - Mucosal erosion [Recovering/Resolving]
  - Renal impairment [Unknown]
  - Nasal ulcer [Unknown]
  - Tooth infection [Unknown]
  - Pseudomonal sepsis [Unknown]
  - Soft tissue disorder [Unknown]
  - Pseudomonas infection [Recovering/Resolving]
  - Swelling face [Recovering/Resolving]

NARRATIVE: CASE EVENT DATE: 201201
